FAERS Safety Report 7559563-X (Version None)
Quarter: 2011Q2

REPORT INFORMATION
  Report Type: 
  Country: None (occurrence: None)
  Receive Date: 20110613
  Receipt Date: 20110526
  Transmission Date: 20111010
  Serious: Yes (Hospitalization)
  Sender: FDA-Public Use
  Company Number: TPA2011A02711

PATIENT
  Sex: Female

DRUGS (1)
  1. ULORIC [Suspect]
     Indication: BLOOD URIC ACID INCREASED
     Dosage: PER ORAL
     Route: 048
     Dates: start: 20100701

REACTIONS (2)
  - NEPHROLITHIASIS [None]
  - CHOLELITHIASIS [None]
